FAERS Safety Report 15316314 (Version 2)
Quarter: 2018Q3

REPORT INFORMATION
  Report Type: Spontaneous
  Country: US (occurrence: US)
  Receive Date: 20180824
  Receipt Date: 20180919
  Transmission Date: 20181010
  Serious: Yes (Other)
  Sender: FDA-Public Use
  Company Number: US-BAYER-2018-157326

PATIENT
  Age: 18 Year
  Sex: Female

DRUGS (2)
  1. KYLEENA [Suspect]
     Active Substance: LEVONORGESTREL
     Indication: CONTRACEPTION
  2. KYLEENA [Suspect]
     Active Substance: LEVONORGESTREL
     Indication: DYSMENORRHOEA
     Dosage: 17.5 MCG/24HR, CONT
     Route: 015
     Dates: start: 20180718, end: 20180816

REACTIONS (1)
  - Device dislocation [None]

NARRATIVE: CASE EVENT DATE: 20180816
